FAERS Safety Report 7918752-2 (Version None)
Quarter: 2011Q4

REPORT INFORMATION
  Report Type: 
  Country: None (occurrence: None)
  Receive Date: 20111114
  Receipt Date: 20111106
  Transmission Date: 20120403
  Serious: No
  Sender: FDA-Public Use
  Company Number: 2011-01307

PATIENT
  Sex: Male

DRUGS (1)
  1. ZICAM (UNKNOWN) [Suspect]
     Dates: start: 20111103

REACTIONS (2)
  - ANOSMIA [None]
  - AGEUSIA [None]
